FAERS Safety Report 18576791 (Version 1)
Quarter: 2020Q4

REPORT INFORMATION
  Report Type: Other
  Country: NL (occurrence: CY)
  Receive Date: 20201203
  Receipt Date: 20201203
  Transmission Date: 20210114
  Serious: Yes (Other)
  Sender: FDA-Public Use
  Company Number: NL-CHIESI-2020CHF05774

PATIENT
  Age: 43 Year
  Sex: Female
  Weight: 55 kg

DRUGS (1)
  1. FERRIPROX [Suspect]
     Active Substance: DEFERIPRONE
     Indication: THALASSAEMIA
     Dosage: 500 MILLIGRAM, UNK
     Route: 048
     Dates: end: 201903

REACTIONS (1)
  - Gastrointestinal malformation [Recovered/Resolved]

NARRATIVE: CASE EVENT DATE: 201901
